FAERS Safety Report 9539004 (Version 1)
Quarter: 2013Q2

REPORT INFORMATION
  Report Type: Spontaneous
  Country: US (occurrence: None)
  Receive Date: 20130517
  Receipt Date: 20130517
  Transmission Date: 20140414
  Serious: Yes (Other)
  Sender: FDA-Public Use
  Company Number: 1000042736

PATIENT
  Age: 63 Year
  Sex: Female

DRUGS (3)
  1. VIIBRYD [Suspect]
     Indication: DEPRESSION
     Route: 048
     Dates: start: 2012, end: 2012
  2. LEVOTHYROXINE (LEVOTHYROXINE SODIUM) [Concomitant]
  3. ZETIA (EZETIMIBE) [Concomitant]

REACTIONS (1)
  - Anxiety [None]
